FAERS Safety Report 15345861 (Version 1)
Quarter: 2018Q3

REPORT INFORMATION
  Report Type: Spontaneous
  Country: US (occurrence: US)
  Receive Date: 20180904
  Receipt Date: 20180904
  Transmission Date: 20181010
  Serious: No
  Sender: FDA-Public Use
  Company Number: US-AMGEN-USASP2018120958

PATIENT

DRUGS (1)
  1. ENBREL [Suspect]
     Active Substance: ETANERCEPT
     Indication: PRODUCT USED FOR UNKNOWN INDICATION
     Dosage: 50 MG, UNK
     Route: 065
     Dates: end: 2018

REACTIONS (5)
  - Pain [Unknown]
  - Drug ineffective [Unknown]
  - Injection site pain [Unknown]
  - Liver function test increased [Unknown]
  - Osteochondritis [Unknown]

NARRATIVE: CASE EVENT DATE: 2018
